FAERS Safety Report 5470983-X (Version None)
Quarter: 2007Q3

REPORT INFORMATION
  Report Type: 
  Country: None (occurrence: None)
  Receive Date: 20070928
  Receipt Date: 20070924
  Transmission Date: 20080115
  Serious: Yes (Hospitalization)
  Sender: FDA-Public Use
  Company Number: A0650242A

PATIENT
  Age: 63 Year
  Sex: Male

DRUGS (22)
  1. COREG [Suspect]
     Dosage: 25MG TWICE PER DAY
     Route: 048
     Dates: start: 20060901
  2. COREG CR [Suspect]
     Dosage: 80MG PER DAY
     Route: 048
     Dates: start: 20070101, end: 20070101
  3. LANTUS [Concomitant]
  4. NOVOLOG [Concomitant]
  5. GLIPIZIDE [Concomitant]
  6. OMEPRAZOLE [Concomitant]
  7. CELLCEPT [Concomitant]
  8. RAPAMUNE [Concomitant]
  9. LASIX [Concomitant]
  10. LISINOPRIL [Concomitant]
  11. SIMVASTATIN [Concomitant]
  12. DIGOXIN [Concomitant]
  13. COUMADIN [Concomitant]
  14. SPIRONOLACTONE [Concomitant]
  15. EYE DROPS [Concomitant]
  16. FOLIC ACID [Concomitant]
  17. DIGOXIN [Concomitant]
  18. LISINOPRIL [Concomitant]
  19. LASIX [Concomitant]
  20. GLIPIZIDE [Concomitant]
  21. NOVOLOG [Concomitant]
  22. LANTUS [Concomitant]

REACTIONS (6)
  - BLOOD GLUCOSE FLUCTUATION [None]
  - BLOOD PRESSURE INCREASED [None]
  - DEHYDRATION [None]
  - DIABETES MELLITUS INADEQUATE CONTROL [None]
  - DYSPNOEA [None]
  - OVERDOSE [None]
